FAERS Safety Report 9705150 (Version 3)
Quarter: 2014Q1

REPORT INFORMATION
  Report Type: Spontaneous
  Country: US (occurrence: US)
  Receive Date: 20131122
  Receipt Date: 20140131
  Transmission Date: 20141002
  Serious: Yes (Other)
  Sender: FDA-Public Use
  Company Number: US-BAYER-2013-140365

PATIENT
  Age: 35 Year
  Sex: Female
  Weight: 61 kg

DRUGS (1)
  1. MIRENA [Suspect]
     Indication: CONTRACEPTION
     Dosage: 20 ?G/D, CONT
     Route: 015
     Dates: start: 20131108, end: 20131111

REACTIONS (13)
  - Genital haemorrhage [None]
  - Genital haemorrhage [None]
  - Feeling abnormal [None]
  - Headache [None]
  - Dizziness [None]
  - Fatigue [None]
  - Feeling abnormal [None]
  - Disturbance in attention [None]
  - Paraesthesia [None]
  - Palpitations [None]
  - Nausea [None]
  - Nervousness [None]
  - Abdominal discomfort [None]
